FAERS Safety Report 6032909-X (Version None)
Quarter: 2008Q4

REPORT INFORMATION
  Report Type: 
  Country: None (occurrence: None)
  Receive Date: 20081224
  Receipt Date: 20081027
  Transmission Date: 20090506
  Serious: No
  Sender: FDA-Public Use
  Company Number: 2008PV036983

PATIENT
  Age: 65 Year
  Sex: Female

DRUGS (9)
  1. SYMLIN [Suspect]
     Indication: TYPE 2 DIABETES MELLITUS
     Dosage: SC
     Route: 058
  2. SYMLIN [Suspect]
     Indication: TYPE 2 DIABETES MELLITUS
     Dosage: 120 MCG;TID;SC 60 MCG,TID, SC
     Route: 058
     Dates: start: 20080301, end: 20080501
  3. SYMLIN [Suspect]
     Indication: TYPE 2 DIABETES MELLITUS
     Dosage: 120 MCG;TID;SC 60 MCG,TID, SC
     Route: 058
     Dates: start: 20080501, end: 20081027
  4. LANTUS [Concomitant]
  5. HUMALOG [Concomitant]
  6. METFORMIN HCL [Concomitant]
  7. ATACAND [Concomitant]
  8. ATENOLOL [Concomitant]
  9. SPIRONOLACTONE W/ HYDROCHLOROTHIAZIDE [Concomitant]

REACTIONS (3)
  - DRUG PRESCRIBING ERROR [None]
  - PALPITATIONS [None]
  - STRESS [None]
